FAERS Safety Report 9870993 (Version 1)
Quarter: 2014Q1

REPORT INFORMATION
  Report Type: Spontaneous
  Country: US (occurrence: None)
  Receive Date: 20140203
  Receipt Date: 20140203
  Transmission Date: 20141002
  Serious: Yes (Hospitalization)
  Sender: FDA-Public Use
  Company Number: 2014AP000810

PATIENT
  Age: 37 Year
  Sex: Female

DRUGS (2)
  1. VERAPAMIL HYDROCHLORIDE [Suspect]
     Dosage: ;UNK ; PO
     Route: 048
  2. NORTRIPYLINE [Concomitant]

REACTIONS (6)
  - Hypocalcaemia [None]
  - Overdose [None]
  - Nausea [None]
  - Dizziness [None]
  - Chest pain [None]
  - Nodal arrhythmia [None]
